FAERS Safety Report 9967876 (Version 1)
Quarter: 2014Q1

REPORT INFORMATION
  Report Type: Report from Study
  Country: US (occurrence: US)
  Receive Date: 20140306
  Receipt Date: 20140306
  Transmission Date: 20141002
  Serious: No
  Sender: FDA-Public Use
  Company Number: US-ABBVIE-13P-163-1138288-00

PATIENT
  Age: 38 Year
  Sex: Female

DRUGS (8)
  1. HUMIRA [Suspect]
     Indication: CROHN^S DISEASE
     Dates: start: 20120920
  2. ALLEGRA [Concomitant]
     Indication: HYPERSENSITIVITY
  3. FLONASE [Concomitant]
     Indication: HYPERSENSITIVITY
  4. BENTYL [Concomitant]
     Indication: CROHN^S DISEASE
  5. EVINA [Concomitant]
     Indication: CROHN^S DISEASE
     Dosage: PILLS, IN PLACE OF ASACOL
  6. COD LIVER OIL [Concomitant]
     Indication: SUPPLEMENTATION THERAPY
     Dosage: PILL DAILY
  7. CONTRACEPTIVES [Concomitant]
     Indication: CONTRACEPTION
     Dosage: PILLS DAILY
  8. ANUSOL [Concomitant]
     Indication: HAEMORRHOIDS

REACTIONS (5)
  - Injection site erythema [Not Recovered/Not Resolved]
  - Injection site swelling [Not Recovered/Not Resolved]
  - Injection site pruritus [Not Recovered/Not Resolved]
  - Rash [Recovered/Resolved]
  - Rash [Not Recovered/Not Resolved]
